FAERS Safety Report 7707432-4 (Version None)
Quarter: 2011Q3

REPORT INFORMATION
  Report Type: 
  Country: None (occurrence: None)
  Receive Date: 20110824
  Receipt Date: 20110524
  Transmission Date: 20111222
  Serious: No
  Sender: FDA-Public Use
  Company Number: US-PFIZER INC-2011112739

PATIENT
  Sex: Female

DRUGS (2)
  1. NAVANE [Suspect]
     Indication: ERECTILE DYSFUNCTION
     Dosage: 2 MG, UNK
  2. NAVANE [Suspect]
     Dosage: 10 MG, UNK

REACTIONS (4)
  - SENSORY DISTURBANCE [None]
  - ASTHENIA [None]
  - HAEMATURIA [None]
  - CHROMATURIA [None]
